FAERS Safety Report 16421792 (Version 9)
Quarter: 2021Q4

REPORT INFORMATION
  Report Type: Spontaneous
  Country: JP (occurrence: JP)
  Receive Date: 20190612
  Receipt Date: 20211118
  Transmission Date: 20220303
  Serious: Yes (Death, Life-Threatening, Hospitalization, Disabling, Other)
  Sender: FDA-Public Use
  Company Number: JP-MSD-M2019-11775

PATIENT
  Age: 69 Year
  Sex: Male
  Weight: 56 kg

DRUGS (6)
  1. KEYTRUDA [Suspect]
     Active Substance: PEMBROLIZUMAB
     Indication: Non-small cell lung cancer stage IV
     Dosage: 200 MILLIGRAM, Q3W
     Route: 041
     Dates: start: 20180904, end: 20190430
  2. AMLODIPINE BESYLATE [Concomitant]
     Active Substance: AMLODIPINE BESYLATE
     Indication: Hypertension
     Dosage: 0.5 MILLIGRAM, QD
     Route: 048
     Dates: end: 20190612
  3. MICARDIS [Concomitant]
     Active Substance: TELMISARTAN
     Indication: Hypertension
     Dosage: 40 MILLIGRAM, QD
     Route: 048
     Dates: end: 20190612
  4. PRAVASTATIN SODIUM [Concomitant]
     Active Substance: PRAVASTATIN SODIUM
     Indication: Hyperlipidaemia
     Dosage: 10 MILLIGRAM, QD
     Route: 048
  5. HERBALS [Concomitant]
     Active Substance: HERBALS
     Indication: Constipation
     Dosage: 2.5 GRAM, QD
     Route: 048
  6. RUPATADINE FUMARATE [Concomitant]
     Active Substance: RUPATADINE FUMARATE
     Route: 048

REACTIONS (4)
  - Adrenocorticotropic hormone deficiency [Recovered/Resolved]
  - Interstitial lung disease [Recovered/Resolved]
  - Malignant neoplasm progression [Fatal]
  - Rash [Recovered/Resolved]

NARRATIVE: CASE EVENT DATE: 20190521
